FAERS Safety Report 9656160 (Version 1)
Quarter: 2013Q4

REPORT INFORMATION
  Report Type: Spontaneous
  Country: US (occurrence: US)
  Receive Date: 20131030
  Receipt Date: 20131030
  Transmission Date: 20140711
  Serious: Yes (Other)
  Sender: FDA-Public Use
  Company Number: US-SA-2013SA109906

PATIENT
  Age: 47 Year
  Sex: Female

DRUGS (2)
  1. LANTUS [Suspect]
     Indication: TYPE 1 DIABETES MELLITUS
     Dosage: DOSE:27 UNIT(S)
     Route: 051
  2. NOVOLOG [Suspect]
     Dosage: NOVOLOG WITH MEALS.
     Route: 065

REACTIONS (2)
  - Spinal disorder [Recovered/Resolved]
  - Blood glucose fluctuation [Recovered/Resolved]
